FAERS Safety Report 9915306 (Version 1)
Quarter: 2014Q1

REPORT INFORMATION
  Report Type: Spontaneous
  Country: FR (occurrence: FR)
  Receive Date: 20140221
  Receipt Date: 20140221
  Transmission Date: 20141002
  Serious: Yes (Life-Threatening, Hospitalization)
  Sender: FDA-Public Use
  Company Number: PHHY2014FR019016

PATIENT
  Age: 65 Year
  Sex: Male

DRUGS (6)
  1. FOLINIC ACID [Suspect]
     Dates: start: 201001, end: 20100506
  2. IRINOTECAN [Suspect]
     Route: 042
     Dates: start: 200903, end: 201001
  3. FLOUROURACIL [Suspect]
     Route: 042
     Dates: start: 200408, end: 20100506
  4. OXALIPLATINE HOSPIRA [Suspect]
     Route: 042
     Dates: start: 201001, end: 20100506
  5. AVASTIN [Suspect]
     Route: 042
     Dates: start: 200903, end: 20100506
  6. ERBITUX [Suspect]
     Route: 042
     Dates: start: 200507, end: 200902

REACTIONS (9)
  - Renal failure acute [Recovering/Resolving]
  - Urine output decreased [Unknown]
  - Asthenia [Unknown]
  - Nausea [Unknown]
  - Vomiting [Unknown]
  - Chills [Unknown]
  - Blood urine present [Unknown]
  - Anuria [Unknown]
  - Chromaturia [Unknown]
